FAERS Safety Report 17013526 (Version 1)
Quarter: 2019Q4

REPORT INFORMATION
  Report Type: Spontaneous
  Country: US (occurrence: US)
  Receive Date: 20191002
  Receipt Date: 20191002
  Transmission Date: 20200122
  Serious: Yes (Disabling, Other)
  Sender: FDA-Public Use
  Company Number: None

PATIENT
  Age: 73 Year
  Sex: Female
  Weight: 71.67 kg

DRUGS (14)
  1. LEVOTHRYROXINE [Concomitant]
  2. SERTRALINE [Concomitant]
     Active Substance: SERTRALINE HYDROCHLORIDE
  3. ATORVASTATIN [Concomitant]
     Active Substance: ATORVASTATIN
  4. ALPRAZOLAM. [Concomitant]
     Active Substance: ALPRAZOLAM
  5. CILER FLEX [Concomitant]
  6. PERESER VISION [Concomitant]
  7. SOSAMIN DS JOINT HEALTH [Concomitant]
  8. INDAPAMIDE. [Concomitant]
     Active Substance: INDAPAMIDE
  9. FLUOROURACIL CREAM 5% [Suspect]
     Active Substance: FLUOROURACIL
     Indication: PRECANCEROUS SKIN LESION
     Route: 058
     Dates: start: 20180909, end: 20180921
  10. IRBESTRAN [Concomitant]
  11. CENTRUM SILVER [Concomitant]
     Active Substance: MINERALS\VITAMINS
  12. CALCIPOTRIENE CREAM 0.005% [Suspect]
     Active Substance: CALCIPOTRIENE
  13. CARVEDOLOL ER [Concomitant]
  14. NIACINAMIDE [Concomitant]
     Active Substance: NIACINAMIDE

REACTIONS (4)
  - Vein disorder [None]
  - Haemorrhage [None]
  - Application site burn [None]
  - Impaired healing [None]

NARRATIVE: CASE EVENT DATE: 20180909
